FAERS Safety Report 26119768 (Version 1)
Quarter: 2025Q4

REPORT INFORMATION
  Report Type: Other
  Country: GB (occurrence: GB)
  Receive Date: 20251204
  Receipt Date: 20251204
  Transmission Date: 20260117
  Serious: Yes (Other)
  Sender: IPCA
  Company Number: None

PATIENT

DRUGS (3)
  1. HYDROXYCHLOROQUINE [Suspect]
     Active Substance: HYDROXYCHLOROQUINE
     Indication: Rheumatoid arthritis
     Dosage: 200 MILLIGRAM, QD
     Route: 065
     Dates: start: 20251007, end: 20251009
  2. BRISTOL LABS LANSOPRAZOLE GASTRO-RESISTANT [Concomitant]
     Indication: Adverse drug reaction
     Dosage: UNK
     Route: 065
     Dates: start: 1993
  3. ESCITALOPRAM [Concomitant]
     Active Substance: ESCITALOPRAM OXALATE
     Indication: Anxiety disorder
     Dosage: UNK
     Route: 065
     Dates: start: 2024

REACTIONS (2)
  - Lip swelling [Recovered/Resolved]
  - Medication error [Unknown]

NARRATIVE: CASE EVENT DATE: 20251007
